FAERS Safety Report 9440727 (Version 3)
Quarter: 2013Q3

REPORT INFORMATION
  Report Type: Report from Study
  Country: US (occurrence: US)
  Receive Date: 20130805
  Receipt Date: 20130916
  Transmission Date: 20140515
  Serious: Yes (Death, Hospitalization)
  Sender: FDA-Public Use
  Company Number: US-JNJFOC-20130712334

PATIENT
  Sex: Female
  Weight: 63.05 kg

DRUGS (7)
  1. DOXORUBICIN HYDROCHLORIDE(DOXIL) [Suspect]
     Indication: OVARIAN EPITHELIAL CANCER
     Route: 042
     Dates: start: 20130603
  2. DAILY MULTIVITAMIN [Concomitant]
     Indication: PRODUCT USED FOR UNKNOWN INDICATION
     Route: 065
  3. PROZAC [Concomitant]
     Indication: PRODUCT USED FOR UNKNOWN INDICATION
     Route: 065
  4. IMODIUM [Concomitant]
     Indication: CONSTIPATION
     Route: 065
  5. PERCOCET [Concomitant]
     Indication: PAIN
     Route: 048
  6. OXYCONTIN [Concomitant]
     Indication: PRODUCT USED FOR UNKNOWN INDICATION
     Route: 048
  7. PHENERGAN [Concomitant]
     Indication: NAUSEA
     Route: 048

REACTIONS (1)
  - Ovarian cancer [Fatal]
